FAERS Safety Report 24763879 (Version 1)
Quarter: 2024Q4

REPORT INFORMATION
  Report Type: Spontaneous
  Country: US (occurrence: US)
  Receive Date: 20241223
  Receipt Date: 20241223
  Transmission Date: 20250115
  Serious: No
  Sender: JOHNSON AND JOHNSON
  Company Number: US-KENVUE-20241030850

PATIENT
  Age: 74 Year
  Sex: Female

DRUGS (1)
  1. TYLENOL 8HR [Suspect]
     Active Substance: ACETAMINOPHEN
     Indication: Back pain
     Dosage: 2 CAPLETS 2-3 TIMES DAILY WHEN NEEDED
     Route: 065
     Dates: start: 202403

REACTIONS (2)
  - Inappropriate schedule of product administration [Unknown]
  - Skin discolouration [Not Recovered/Not Resolved]

NARRATIVE: CASE EVENT DATE: 20240301
